FAERS Safety Report 14861458 (Version 1)
Quarter: 2018Q2

REPORT INFORMATION
  Report Type: Spontaneous
  Country: IT (occurrence: IT)
  Receive Date: 20180508
  Receipt Date: 20180508
  Transmission Date: 20180711
  Serious: Yes (Other)
  Sender: FDA-Public Use
  Company Number: IT-ELI_LILLY_AND_COMPANY-IT201804014254

PATIENT
  Age: 68 Year
  Sex: Female

DRUGS (4)
  1. DIBASE [Concomitant]
     Active Substance: CHOLECALCIFEROL
     Indication: PRODUCT USED FOR UNKNOWN INDICATION
  2. LEVOXACIN [Concomitant]
     Active Substance: LEVOFLOXACIN
     Indication: PYREXIA
  3. FORSTEO [Suspect]
     Active Substance: TERIPARATIDE
     Indication: PRODUCT USED FOR UNKNOWN INDICATION
     Dosage: UNK, UNKNOWN
     Route: 065
     Dates: start: 201707
  4. TORVAST [Concomitant]
     Active Substance: ATORVASTATIN
     Indication: BLOOD CHOLESTEROL

REACTIONS (2)
  - Haematochezia [Unknown]
  - Back pain [Unknown]

NARRATIVE: CASE EVENT DATE: 20180423
